FAERS Safety Report 6785337-3 (Version None)
Quarter: 2010Q2

REPORT INFORMATION
  Report Type: 
  Country: None (occurrence: None)
  Receive Date: 20100623
  Receipt Date: 20100615
  Transmission Date: 20101027
  Serious: Yes (Hospitalization)
  Sender: FDA-Public Use
  Company Number: 2008BI008586

PATIENT
  Age: 60 Year
  Sex: Male
  Weight: 120 kg

DRUGS (1)
  1. TYSABRI [Suspect]
     Indication: MULTIPLE SCLEROSIS
     Route: 042
     Dates: start: 20060926

REACTIONS (4)
  - ARTHRITIS [None]
  - CARTILAGE INJURY [None]
  - SURGERY [None]
  - TRIGGER FINGER [None]
